FAERS Safety Report 7633770-X (Version None)
Quarter: 2011Q3

REPORT INFORMATION
  Report Type: 
  Country: None (occurrence: None)
  Receive Date: 20110725
  Receipt Date: 20110720
  Transmission Date: 20111222
  Serious: Yes (Death, Hospitalization)
  Sender: FDA-Public Use
  Company Number: US-CELGENEUS-163-21880-11062513

PATIENT
  Sex: Female
  Weight: 68.1 kg

DRUGS (11)
  1. OMEPRAZOLE [Concomitant]
     Dosage: 40 MILLIGRAM
     Route: 048
  2. METOPROLOL TARTRATE [Concomitant]
     Dosage: 100 MILLIGRAM
     Route: 048
  3. NITROGLYCERIN [Concomitant]
     Dosage: .4 MILLIGRAM
     Route: 060
  4. REVLIMID [Suspect]
     Indication: MYELODYSPLASTIC SYNDROME
     Dosage: 10 MILLIGRAM
     Route: 048
     Dates: start: 20110308, end: 20110408
  5. CENTRUM [Concomitant]
     Dosage: 1 TABLET
     Route: 048
  6. KEFLEX [Concomitant]
     Dosage: 500 MILLIGRAM
     Route: 048
  7. LIPITOR [Concomitant]
     Dosage: 80 MILLIGRAM
     Route: 048
  8. LORTAB [Concomitant]
     Dosage: 5-500MG
     Route: 048
  9. ASPIRIN [Concomitant]
     Dosage: 81 MILLIGRAM
     Route: 048
  10. FOSAMAX [Concomitant]
     Dosage: 70 MILLIGRAM
     Route: 048
  11. CALCIUM WITH VITAMIN D [Concomitant]
     Dosage: 600 MILLIGRAM
     Route: 048

REACTIONS (1)
  - DEATH [None]
